FAERS Safety Report 24575564 (Version 2)
Quarter: 2025Q3

REPORT INFORMATION
  Report Type: Spontaneous
  Country: US (occurrence: US)
  Receive Date: 20241104
  Receipt Date: 20250809
  Transmission Date: 20251020
  Serious: Yes (Other)
  Sender: ALEXION PHARMACEUTICALS
  Company Number: US-ASTRAZENECA-202410USA022076US

PATIENT

DRUGS (3)
  1. CRESTOR [Suspect]
     Active Substance: ROSUVASTATIN CALCIUM
     Indication: Blood cholesterol
     Dosage: 40 MILLIGRAM, QD
     Dates: start: 20240726, end: 20240819
  2. LISINOPRIL [Suspect]
     Active Substance: LISINOPRIL
     Indication: Blood pressure measurement
     Dosage: 40 MILLIGRAM, QD
     Route: 065
     Dates: start: 20200109, end: 20241023
  3. SPIRONOLACTONE [Suspect]
     Active Substance: SPIRONOLACTONE
     Indication: Blood pressure measurement
     Dosage: 40 MILLIGRAM, QD
     Route: 065
     Dates: start: 20240717, end: 20240820

REACTIONS (5)
  - Acute kidney injury [Unknown]
  - Hyperhidrosis [Unknown]
  - Blood pressure measurement [Unknown]
  - Fatigue [Unknown]
  - Dizziness [Unknown]
